FAERS Safety Report 11170461 (Version 3)
Quarter: 2015Q2

REPORT INFORMATION
  Report Type: Report from Study
  Country: CA (occurrence: CA)
  Receive Date: 20150608
  Receipt Date: 20150629
  Transmission Date: 20150821
  Serious: Yes (Other)
  Sender: FDA-Public Use
  Company Number: CA-ROCHE-1588365

PATIENT
  Age: 68 Year
  Sex: Female

DRUGS (18)
  1. ACETAMINOPHEN. [Concomitant]
     Active Substance: ACETAMINOPHEN
     Indication: PREMEDICATION
     Route: 048
     Dates: start: 20141111
  2. PANTOPRAZOLE [Concomitant]
     Active Substance: PANTOPRAZOLE SODIUM
  3. SYNTHROID [Concomitant]
     Active Substance: LEVOTHYROXINE SODIUM
  4. DILTIAZEM SR [Concomitant]
     Active Substance: DILTIAZEM HYDROCHLORIDE
     Dosage: 24 HR SUSTAINED RELEASE
     Route: 065
  5. FLECAINIDE [Concomitant]
     Active Substance: FLECAINIDE
  6. CYCLOBENZAPRINE [Concomitant]
     Active Substance: CYCLOBENZAPRINE
  7. RITUXAN [Suspect]
     Active Substance: RITUXIMAB
     Indication: RHEUMATOID ARTHRITIS
     Dosage: DAY 1 AND DAY 15
     Route: 042
     Dates: start: 20141111
  8. VOLTAREN [Concomitant]
     Active Substance: DICLOFENAC SODIUM
  9. RISEDRONATE [Concomitant]
     Active Substance: RISEDRONATE SODIUM
  10. CALCITE [Concomitant]
     Active Substance: CALCIUM CARBONATE
  11. AZATHIOPRINE. [Concomitant]
     Active Substance: AZATHIOPRINE
  12. WINPRED [Concomitant]
     Active Substance: PREDNISONE
  13. ACETYLSALICYLIC ACID [Concomitant]
     Active Substance: ASPIRIN
  14. METHYLPREDNISOLONE. [Concomitant]
     Active Substance: METHYLPREDNISOLONE
     Indication: PREMEDICATION
     Route: 042
     Dates: start: 20141111
  15. PREDNISONE. [Concomitant]
     Active Substance: PREDNISONE
  16. LASIX [Concomitant]
     Active Substance: FUROSEMIDE
  17. RAMIPRIL. [Concomitant]
     Active Substance: RAMIPRIL
  18. DIPHENHYDRAMINE [Concomitant]
     Active Substance: DIPHENHYDRAMINE
     Indication: PREMEDICATION
     Route: 048
     Dates: start: 20141111

REACTIONS (13)
  - Oedema peripheral [Unknown]
  - Lymphadenopathy [Unknown]
  - Arthralgia [Unknown]
  - Throat irritation [Recovered/Resolved]
  - Respiratory rate decreased [Unknown]
  - Limb injury [Unknown]
  - Diarrhoea [Recovered/Resolved]
  - Dyspnoea [Recovered/Resolved]
  - Psoriasis [Unknown]
  - Feeling cold [Unknown]
  - Hot flush [Recovered/Resolved]
  - Cough [Recovered/Resolved]
  - Blood pressure increased [Unknown]

NARRATIVE: CASE EVENT DATE: 201504
